FAERS Safety Report 15229735 (Version 1)
Quarter: 2018Q3

REPORT INFORMATION
  Report Type: Spontaneous
  Country: US (occurrence: US)
  Receive Date: 20180802
  Receipt Date: 20180802
  Transmission Date: 20181010
  Serious: Yes (Other)
  Sender: FDA-Public Use
  Company Number: US-ACCORD-061908

PATIENT
  Age: 49 Year
  Sex: Female
  Weight: 88.9 kg

DRUGS (9)
  1. NEOSAR [Suspect]
     Active Substance: CYCLOPHOSPHAMIDE
     Indication: BREAST CANCER
     Dates: start: 20120419, end: 20120802
  2. CYTOXAN [Suspect]
     Active Substance: CYCLOPHOSPHAMIDE
     Indication: BREAST CANCER
     Dosage: 3 WEEK X 6?MODIFIED CAF
     Dates: start: 20120419, end: 20120802
  3. TAMOXIFEN [Suspect]
     Active Substance: TAMOXIFEN
     Indication: BREAST CANCER
     Dosage: 3 WEEK X 6?MODIFIED CAF
  4. NASONEX [Concomitant]
     Active Substance: MOMETASONE FUROATE
     Dates: start: 1997
  5. FLONASE [Concomitant]
     Active Substance: FLUTICASONE PROPIONATE
  6. DOCETAXEL HOSPIRA [Suspect]
     Active Substance: DOCETAXEL
     Indication: BREAST CANCER
     Route: 042
     Dates: start: 20120419, end: 20120802
  7. PRAVASTATIN. [Concomitant]
     Active Substance: PRAVASTATIN
     Dosage: RECEIVING UP TO PRESENT
     Dates: start: 20070101
  8. DOCETAXEL ACCORD [Suspect]
     Active Substance: DOCETAXEL
     Indication: BREAST CANCER
     Dosage: 6 CYCLE?FREQUENCY: EVERY THREE WEEK
     Route: 042
     Dates: start: 20120419, end: 20120802
  9. CLARITIN [Concomitant]
     Active Substance: LORATADINE

REACTIONS (3)
  - Hair texture abnormal [Not Recovered/Not Resolved]
  - Alopecia [Not Recovered/Not Resolved]
  - Hair colour changes [Not Recovered/Not Resolved]

NARRATIVE: CASE EVENT DATE: 20120801
